FAERS Safety Report 4752324-6 (Version None)
Quarter: 2005Q3

REPORT INFORMATION
  Report Type: 
  Country: None (occurrence: None)
  Receive Date: 20050825
  Receipt Date: 20041203
  Transmission Date: 20060218
  Serious: Yes (Other)
  Sender: FDA-Public Use
  Company Number: GB-GLAXOSMITHKLINE-B0359652A

PATIENT
  Sex: Male

DRUGS (4)
  1. SEROXAT [Suspect]
     Route: 065
     Dates: start: 20000101, end: 20010301
  2. CARBAMAZEPINE [Concomitant]
     Route: 065
     Dates: start: 20001001
  3. TRAZODONE [Concomitant]
     Dosage: 150MG UNKNOWN
     Route: 065
     Dates: start: 20001001
  4. CHLORPROMAZINE HCL [Concomitant]
     Route: 065

REACTIONS (9)
  - AGGRESSION [None]
  - AGITATION [None]
  - ANGER [None]
  - ANOREXIA [None]
  - CONDITION AGGRAVATED [None]
  - DEPRESSED MOOD [None]
  - ILL-DEFINED DISORDER [None]
  - SUICIDAL IDEATION [None]
  - TENSION [None]
